FAERS Safety Report 5677883-0 (Version None)
Quarter: 2008Q1

REPORT INFORMATION
  Report Type: 
  Country: None (occurrence: None)
  Receive Date: 20080319
  Receipt Date: 20080306
  Transmission Date: 20080703
  Serious: Yes (Hospitalization, Other)
  Sender: FDA-Public Use
  Company Number: 232040J08USA

PATIENT
  Age: 46 Year
  Sex: Female
  Weight: 68.0396 kg

DRUGS (10)
  1. REBIF [Suspect]
     Indication: MULTIPLE SCLEROSIS
     Dosage: 44 MCG, 3 IN 1 WEEKS, SUBCUTANEOUS
     Route: 058
     Dates: start: 20050101, end: 20070713
  2. FRAMPRIDINE (ALL OTHER THERAPEUTIC PRODUCTS) [Concomitant]
  3. BACLOFEN [Concomitant]
  4. MIRAPEX [Concomitant]
  5. EFFEXOR XR [Concomitant]
  6. WELLBUTRIN [Concomitant]
  7. LORATADINE [Concomitant]
  8. LYRICA [Concomitant]
  9. AMBIEN [Concomitant]
  10. IMITREX [Concomitant]

REACTIONS (6)
  - BONE DISORDER [None]
  - DRUG INEFFECTIVE [None]
  - IMMOBILE [None]
  - INJECTION SITE CELLULITIS [None]
  - INSOMNIA [None]
  - MUSCLE SPASMS [None]
